FAERS Safety Report 13879838 (Version 1)
Quarter: 2017Q3

REPORT INFORMATION
  Report Type: Spontaneous
  Country: US (occurrence: US)
  Receive Date: 20170815
  Receipt Date: 20170815
  Transmission Date: 20171127
  Serious: Yes (Disabling)
  Sender: FDA-Public Use
  Company Number: None

PATIENT
  Age: 39 Year
  Sex: Female
  Weight: 63 kg

DRUGS (1)
  1. LUPRON DEPOT [Suspect]
     Active Substance: LEUPROLIDE ACETATE
     Indication: UTERINE LEIOMYOMA
     Dates: start: 20161110

REACTIONS (12)
  - Tendon pain [None]
  - Bone pain [None]
  - Insomnia [None]
  - Tachycardia [None]
  - Blood pressure increased [None]
  - Cyst [None]
  - Spinal osteoarthritis [None]
  - Intervertebral disc protrusion [None]
  - Headache [None]
  - Neuralgia [None]
  - Myalgia [None]
  - Spinal pain [None]

NARRATIVE: CASE EVENT DATE: 20161201
